FAERS Safety Report 15388472 (Version 2)
Quarter: 2018Q4

REPORT INFORMATION
  Report Type: Spontaneous
  Country: US (occurrence: US)
  Receive Date: 20180915
  Receipt Date: 20181115
  Transmission Date: 20190204
  Serious: Yes (Hospitalization, Other)
  Sender: FDA-Public Use
  Company Number: US-JNJFOC-20180838643

PATIENT
  Age: 55 Year
  Sex: Female

DRUGS (25)
  1. FOLIC ACID. [Concomitant]
     Active Substance: FOLIC ACID
     Route: 048
  2. HYDROCODONE [Concomitant]
     Active Substance: HYDROCODONE
     Route: 065
  3. WARFARIN [Concomitant]
     Active Substance: WARFARIN
     Route: 048
  4. DARZALEX [Suspect]
     Active Substance: DARATUMUMAB
     Indication: PLASMA CELL MYELOMA
     Route: 042
     Dates: start: 20180823
  5. FAMOTIDINE. [Concomitant]
     Active Substance: FAMOTIDINE
     Route: 065
  6. BUPROPION. [Concomitant]
     Active Substance: BUPROPION
     Route: 065
  7. GABAPENTIN. [Concomitant]
     Active Substance: GABAPENTIN
     Route: 048
  8. PANTOPRAZOLE [Concomitant]
     Active Substance: PANTOPRAZOLE
     Route: 048
  9. DARZALEX [Suspect]
     Active Substance: DARATUMUMAB
     Indication: PLASMA CELL MYELOMA
     Route: 042
     Dates: start: 20180820, end: 20180820
  10. ATROVENT [Concomitant]
     Active Substance: IPRATROPIUM BROMIDE
     Route: 055
  11. DAPSONE. [Concomitant]
     Active Substance: DAPSONE
     Route: 048
  12. ZOLPIDEM [Concomitant]
     Active Substance: ZOLPIDEM\ZOLPIDEM TARTRATE
     Route: 048
  13. POMALIDOMIDE [Concomitant]
     Active Substance: POMALIDOMIDE
     Route: 048
  14. CYCLOBENZAPRINE. [Concomitant]
     Active Substance: CYCLOBENZAPRINE
     Route: 065
  15. HYDRALAZINE [Concomitant]
     Active Substance: HYDRALAZINE HYDROCHLORIDE
     Route: 048
  16. METOPROLOL TARTRATE. [Concomitant]
     Active Substance: METOPROLOL TARTRATE
     Route: 048
  17. CENTRUM [Concomitant]
     Active Substance: VITAMINS
     Route: 065
  18. ALPRAZOLAM. [Concomitant]
     Active Substance: ALPRAZOLAM
     Route: 048
  19. MONTELUKAST [Concomitant]
     Active Substance: MONTELUKAST SODIUM
     Route: 065
  20. ALBUTEROL. [Concomitant]
     Active Substance: ALBUTEROL
     Route: 055
  21. BUPROPION. [Concomitant]
     Active Substance: BUPROPION
     Route: 065
  22. MAGNESIUM OXIDE. [Concomitant]
     Active Substance: MAGNESIUM OXIDE
     Route: 048
  23. BUSPIRONE [Concomitant]
     Active Substance: BUSPIRONE HYDROCHLORIDE
     Route: 048
  24. ZOVIRAX [Concomitant]
     Active Substance: ACYCLOVIR
     Route: 048
  25. ISOSORBIDE DINITRATE. [Concomitant]
     Active Substance: ISOSORBIDE DINITRATE
     Route: 048

REACTIONS (5)
  - Infusion related reaction [Unknown]
  - Chest discomfort [Unknown]
  - Respiratory distress [Recovered/Resolved]
  - Cough [Unknown]
  - Rash [Recovered/Resolved]

NARRATIVE: CASE EVENT DATE: 20180820
